FAERS Safety Report 24726806 (Version 1)
Quarter: 2024Q4

REPORT INFORMATION
  Report Type: Spontaneous
  Country: US (occurrence: None)
  Receive Date: 20241211
  Receipt Date: 20241211
  Transmission Date: 20250115
  Serious: Yes (Other)
  Sender: Public
  Company Number: None

PATIENT
  Age: 50 Year
  Sex: Female

DRUGS (2)
  1. SKYRIZI [Suspect]
     Active Substance: RISANKIZUMAB-RZAA
     Indication: Psoriasis
     Dosage: OTHER FREQUENCY : DAYS 1 AND 29;?
     Route: 058
     Dates: start: 20241118
  2. SKYRIZI [Suspect]
     Active Substance: RISANKIZUMAB-RZAA
     Dosage: OTHER FREQUENCY : Q 12 WEEKS;?
     Route: 058

REACTIONS (4)
  - Rash pustular [None]
  - Rash pruritic [None]
  - Rash [None]
  - Haemorrhage [None]

NARRATIVE: CASE EVENT DATE: 20241119
